FAERS Safety Report 8299324-X (Version None)
Quarter: 2012Q2

REPORT INFORMATION
  Report Type: 
  Country: None (occurrence: None)
  Receive Date: 20120419
  Receipt Date: 20120412
  Transmission Date: 20120825
  Serious: Yes (Hospitalization)
  Sender: FDA-Public Use
  Company Number: US-ABBOTT-12P-163-0924605-00

PATIENT
  Sex: Male

DRUGS (12)
  1. XANAX [Concomitant]
     Indication: PRODUCT USED FOR UNKNOWN INDICATION
  2. SELENIUM [Concomitant]
     Indication: MINERAL SUPPLEMENTATION
     Dosage: NOT REPORTED
  3. VITAMIN D [Concomitant]
     Indication: VITAMIN SUPPLEMENTATION
     Dosage: ORAL
  4. HUMIRA [Suspect]
     Indication: CROHN'S DISEASE
     Route: 058
     Dates: start: 20100301
  5. CALCIUM CARBONATE [Concomitant]
     Indication: MINERAL SUPPLEMENTATION
  6. IRON [Concomitant]
     Indication: MINERAL SUPPLEMENTATION
     Dosage: NOT REPORTED
  7. LOMOTIL [Concomitant]
     Indication: DIARRHOEA
     Dosage: NOT REPORTED
  8. DIGOXIN [Concomitant]
     Indication: ATRIAL FIBRILLATION
     Dosage: NOT REPORTED
  9. TRAZODONE HCL [Concomitant]
     Indication: INSOMNIA
     Dosage: NOT REPORTED
  10. WARFARIN SODIUM [Concomitant]
     Indication: PRODUCT USED FOR UNKNOWN INDICATION
     Dosage: NOT REPORTED
  11. IMODIUM [Concomitant]
     Indication: DIARRHOEA
     Dosage: NOT REPORTED
  12. PROBIOTIC [Concomitant]
     Indication: PROBIOTIC THERAPY

REACTIONS (2)
  - INTESTINAL STENOSIS [None]
  - ABDOMINAL PAIN [None]
